FAERS Safety Report 6265002-1 (Version None)
Quarter: 2009Q3

REPORT INFORMATION
  Report Type: 
  Country: None (occurrence: None)
  Receive Date: 20090713
  Receipt Date: 20090708
  Transmission Date: 20100115
  Serious: Yes (Hospitalization)
  Sender: FDA-Public Use
  Company Number: FR-WYE-G04008409

PATIENT
  Sex: Female

DRUGS (12)
  1. NOVATREX [Suspect]
     Indication: RHEUMATOID ARTHRITIS
     Route: 048
     Dates: start: 20090327, end: 20090601
  2. EFFEXOR [Suspect]
     Route: 048
  3. SPECIAFOLDINE [Concomitant]
     Dosage: 5 MG STRENGTH; DOSE UNKNOWN
     Route: 048
     Dates: end: 20090601
  4. DI-ANTALVIC [Concomitant]
     Route: 048
     Dates: end: 20090601
  5. TEMERIT [Concomitant]
     Route: 048
  6. BROMAZEPAM [Concomitant]
     Route: 048
     Dates: end: 20090601
  7. VOLTAREN [Concomitant]
     Dosage: UNKNOWN
     Dates: end: 20090601
  8. CORTANCYL [Concomitant]
     Dosage: 5 MG TOTAL DAILY
     Route: 048
     Dates: end: 20090601
  9. CORTANCYL [Concomitant]
     Dosage: UNKNOWN: DOSE INCREASED
     Route: 048
     Dates: start: 20090602
  10. CACIT VITAMINE D3 [Concomitant]
     Route: 048
  11. LANSOPRAZOLE [Suspect]
     Route: 048
     Dates: end: 20090601
  12. FOSAMAX [Concomitant]
     Dosage: 70 MG TOTAL WEEKLY
     Route: 048
     Dates: end: 20090601

REACTIONS (2)
  - ALVEOLITIS [None]
  - INTERSTITIAL LUNG DISEASE [None]
